FAERS Safety Report 5451823-1 (Version None)
Quarter: 2007Q3

REPORT INFORMATION
  Report Type: 
  Country: None (occurrence: None)
  Receive Date: 20070912
  Receipt Date: 20070828
  Transmission Date: 20080115
  Serious: Yes (Death)
  Sender: FDA-Public Use
  Company Number: 100#08#2007-03356

PATIENT
  Age: 8 Month
  Sex: Male

DRUGS (5)
  1. DOXORUBICIN HCL [Suspect]
     Indication: RETINOBLASTOMA
     Dosage: 120 MG/M2 (TWO DOSES)
  2. METHOTREXATE [Suspect]
     Indication: RETINOBLASTOMA
  3. VINCRISTINE [Suspect]
     Indication: RETINOBLASTOMA
     Dosage: 3 MG/M2 (2 CYCLES)
  4. CYCLOPHOSPHAMIDE [Suspect]
     Indication: RETINOBLASTOMA
     Dosage: 2100 MG/M2 (2 DOSES)
  5. CYTARABINE [Suspect]
     Indication: RETINOBLASTOMA

REACTIONS (3)
  - ACUTE MYELOID LEUKAEMIA [None]
  - DISSEMINATED INTRAVASCULAR COAGULATION [None]
  - LEUKOCYTOSIS [None]
